FAERS Safety Report 24539732 (Version 3)
Quarter: 2024Q4

REPORT INFORMATION
  Report Type: Report from Study
  Country: KR (occurrence: KR)
  Receive Date: 20241023
  Receipt Date: 20241119
  Transmission Date: 20250114
  Serious: Yes (Other)
  Sender: MYLAN
  Company Number: KR-MYLANLABS-2024M1095092

PATIENT
  Age: 81 Year
  Sex: Male
  Weight: 40.5 kg

DRUGS (10)
  1. LIPITOR [Suspect]
     Active Substance: ATORVASTATIN CALCIUM
     Indication: Dyslipidaemia
     Dosage: 40 MILLIGRAM, QD
     Route: 065
     Dates: start: 20240415, end: 20240526
  2. LIPITOR [Suspect]
     Active Substance: ATORVASTATIN CALCIUM
     Dosage: 80 MILLIGRAM, QD
     Route: 065
     Dates: start: 20240527, end: 20240714
  3. ASPIRIN [Concomitant]
     Active Substance: ASPIRIN
     Indication: Infarction
     Dosage: 1 DOSAGE FORM, QD
     Route: 048
     Dates: start: 20221002
  4. NOLTEC [Concomitant]
     Indication: Prophylaxis
     Dosage: 1 DOSAGE FORM, QD
     Route: 048
     Dates: start: 20221020
  5. NICERGOLINE [Concomitant]
     Active Substance: NICERGOLINE
     Indication: Infarction
     Dosage: 1 DOSAGE FORM, BID
     Route: 048
     Dates: start: 20221020
  6. OROSARTAN [Concomitant]
     Indication: Hypertension
     Dosage: 1 DOSAGE FORM, QD
     Route: 048
     Dates: start: 20230704
  7. LIPITOR [Concomitant]
     Active Substance: ATORVASTATIN CALCIUM
     Indication: Infarction
     Dosage: 1 DOSAGE FORM, QD
     Route: 048
     Dates: start: 20221002, end: 20240414
  8. CALCIUM CARBONATE\CHOLECALCIFEROL [Concomitant]
     Active Substance: CALCIUM CARBONATE\CHOLECALCIFEROL
     Indication: Pulmonary mass
     Dosage: 1 DOSAGE FORM, QD
     Route: 048
     Dates: start: 20230118
  9. PROLIA [Concomitant]
     Active Substance: DENOSUMAB
     Indication: Pulmonary mass
     Dosage: 60 MILLILITER, QD (PREFILLED SYR)
     Route: 065
     Dates: start: 20230118, end: 20240422
  10. DIABEX [Concomitant]
     Active Substance: METFORMIN HYDROCHLORIDE
     Indication: Type 2 diabetes mellitus
     Dosage: 1 DOSAGE FORM, BID
     Route: 048
     Dates: start: 20240715

REACTIONS (1)
  - Type 2 diabetes mellitus [Unknown]

NARRATIVE: CASE EVENT DATE: 20240714
